FAERS Safety Report 19991499 (Version 1)
Quarter: 2021Q4

REPORT INFORMATION
  Report Type: Spontaneous
  Country: US (occurrence: US)
  Receive Date: 20211025
  Receipt Date: 20211025
  Transmission Date: 20220303
  Serious: Yes (Hospitalization, Other)
  Sender: FDA-Public Use
  Company Number: US-CONCORD BIOTECH LIMITED-CBL202110-000550

PATIENT
  Sex: Female

DRUGS (10)
  1. TACROLIMUS [Suspect]
     Active Substance: TACROLIMUS
     Indication: Immunosuppression
     Dosage: UNKNOWN
  2. TACROLIMUS [Suspect]
     Active Substance: TACROLIMUS
     Dosage: LOW DOSE
  3. EMTRICITABINE\TENOFOVIR DISOPROXIL FUMARATE [Suspect]
     Active Substance: EMTRICITABINE\TENOFOVIR DISOPROXIL FUMARATE
     Indication: Prophylaxis against HIV infection
     Dosage: 200/300 MG DAILY
  4. MYCOPHENOLATE MOFETIL [Concomitant]
     Active Substance: MYCOPHENOLATE MOFETIL
     Indication: Immunosuppression
  5. CLONIDINE [Concomitant]
     Active Substance: CLONIDINE
  6. QUETIAPINE [Concomitant]
     Active Substance: QUETIAPINE
  7. PRAVASTATIN [Concomitant]
     Active Substance: PRAVASTATIN
  8. OXYMORPHONE [Concomitant]
     Active Substance: OXYMORPHONE
  9. LIDOCAINE [Concomitant]
     Active Substance: LIDOCAINE
  10. POTASSIUM [Concomitant]
     Active Substance: POTASSIUM

REACTIONS (3)
  - Fanconi syndrome [Recovering/Resolving]
  - Drug interaction [Recovering/Resolving]
  - Drug level above therapeutic [Unknown]
